FAERS Safety Report 10070454 (Version 3)
Quarter: 2014Q4

REPORT INFORMATION
  Report Type: Spontaneous
  Country: JP (occurrence: JP)
  Receive Date: 20140410
  Receipt Date: 20141006
  Transmission Date: 20150528
  Serious: Yes (Death, Hospitalization)
  Sender: FDA-Public Use
  Company Number: PHJP2014JP000692

PATIENT
  Age: 70 Year
  Sex: Female
  Weight: 44 kg

DRUGS (7)
  1. TEGRETOL [Suspect]
     Active Substance: CARBAMAZEPINE
     Dosage: UNK UKN, UNK
     Route: 048
     Dates: start: 20121214, end: 201301
  2. MENIACE [Concomitant]
     Indication: PRODUCT USED FOR UNKNOWN INDICATION
     Dosage: UNK UKN, UNK
     Route: 048
  3. TEGRETOL [Suspect]
     Active Substance: CARBAMAZEPINE
     Indication: TRIGEMINAL NEURALGIA
     Dosage: 100 MG, TID
     Route: 048
     Dates: start: 20121205, end: 20121212
  4. AMBROXOL HYDROCHLORIDE [Concomitant]
     Active Substance: AMBROXOL HYDROCHLORIDE
     Indication: PRODUCT USED FOR UNKNOWN INDICATION
     Dosage: UNK UKN, UNK
     Route: 048
  5. EVISTA [Concomitant]
     Active Substance: RALOXIFENE HYDROCHLORIDE
     Indication: PRODUCT USED FOR UNKNOWN INDICATION
     Dosage: UNK UKN, UNK
     Route: 048
  6. DIOVAN [Concomitant]
     Active Substance: VALSARTAN
     Indication: PRODUCT USED FOR UNKNOWN INDICATION
     Dosage: UNK UKN, UNK
     Route: 048
  7. MOHRUS [Concomitant]
     Active Substance: KETOPROFEN
     Indication: PRODUCT USED FOR UNKNOWN INDICATION
     Dosage: UNK UKN, UNK
     Route: 065

REACTIONS (17)
  - Drug reaction with eosinophilia and systemic symptoms [Fatal]
  - Dizziness [Fatal]
  - Decreased appetite [Fatal]
  - Cough [Fatal]
  - Human herpesvirus 6 infection [Fatal]
  - Erythema [Fatal]
  - Headache [Fatal]
  - Pruritus [Fatal]
  - Eosinophilia [Fatal]
  - Lymphadenopathy [Fatal]
  - Myocarditis [Fatal]
  - Vomiting [Fatal]
  - Hepatic function abnormal [Fatal]
  - Pyrexia [Fatal]
  - Rash [Fatal]
  - White blood cell count increased [Fatal]
  - Lymphocyte morphology abnormal [Fatal]

NARRATIVE: CASE EVENT DATE: 20121212
